FAERS Safety Report 7497819-X (Version None)
Quarter: 2011Q2

REPORT INFORMATION
  Report Type: 
  Country: None (occurrence: None)
  Receive Date: 20110524
  Receipt Date: 20110503
  Transmission Date: 20111010
  Serious: Yes (Hospitalization, Other)
  Sender: FDA-Public Use
  Company Number: US-BAYER-2010-003857

PATIENT
  Age: 31 Year
  Sex: Female
  Weight: 102 kg

DRUGS (6)
  1. HYDROCODONE [Concomitant]
  2. YASMIN [Suspect]
     Indication: PRODUCT USED FOR UNKNOWN INDICATION
     Dosage: UNK
     Route: 048
     Dates: start: 20060801
  3. LEXAPRO [Concomitant]
     Dosage: 10 MG, QD
  4. YAZ [Suspect]
     Indication: PRODUCT USED FOR UNKNOWN INDICATION
     Dosage: UNK
     Route: 048
     Dates: start: 20060801
  5. DROSPIRENONE AND ETHINYL ESTRADIOL [Suspect]
     Indication: PRODUCT USED FOR UNKNOWN INDICATION
     Dosage: UNK
     Route: 048
     Dates: start: 20060801
  6. FLEXERIL [Concomitant]

REACTIONS (6)
  - PULMONARY EMBOLISM [None]
  - INJURY [None]
  - PAIN [None]
  - MENTAL DISORDER [None]
  - DEEP VEIN THROMBOSIS [None]
  - ANXIETY [None]
